FAERS Safety Report 24691300 (Version 1)
Quarter: 2024Q4

REPORT INFORMATION
  Report Type: Spontaneous
  Country: US (occurrence: US)
  Receive Date: 20241203
  Receipt Date: 20241203
  Transmission Date: 20250115
  Serious: No
  Sender: Haleon PLC
  Company Number: US-HALEON-2212675

PATIENT
  Age: 68 Year
  Sex: Male

DRUGS (1)
  1. SENSODYNE PRONAMEL GENTLE WHITENING ADVANCED [Suspect]
     Active Substance: POTASSIUM NITRATE\SODIUM FLUORIDE
     Indication: Dental cleaning
     Dates: start: 20241121, end: 20241130

REACTIONS (4)
  - Toothache [Not Recovered/Not Resolved]
  - Hyperaesthesia teeth [Not Recovered/Not Resolved]
  - Dental discomfort [Unknown]
  - Condition aggravated [Not Recovered/Not Resolved]

NARRATIVE: CASE EVENT DATE: 20241124
